FAERS Safety Report 7202709-3 (Version None)
Quarter: 2010Q4

REPORT INFORMATION
  Report Type: 
  Country: None (occurrence: None)
  Receive Date: 20101216
  Receipt Date: 20101201
  Transmission Date: 20110411
  Serious: Yes (Other)
  Sender: FDA-Public Use
  Company Number: AUR-APL-2010-03025

PATIENT
  Age: 29 Year
  Sex: Male

DRUGS (8)
  1. ZIDOVUDINE [Suspect]
     Dosage: 250 MG BID ORAL
     Route: 048
  2. COTRIM [Suspect]
     Dosage: 1DF QD ORAL
     Route: 048
  3. CYCLIZINE [Concomitant]
  4. EFAZVIRENZ [Concomitant]
  5. HYDROXYZINE [Concomitant]
  6. LAMIVUDINE [Concomitant]
  7. OMEPRAZOLE [Concomitant]
  8. SEVELAMER [Concomitant]

REACTIONS (2)
  - PLATELET COUNT DECREASED [None]
  - TREATMENT NONCOMPLIANCE [None]
